FAERS Safety Report 7233296-1 (Version None)
Quarter: 2011Q1

REPORT INFORMATION
  Report Type: 
  Country: None (occurrence: None)
  Receive Date: 20110119
  Receipt Date: 20110104
  Transmission Date: 20110831
  Serious: Yes (Other)
  Sender: FDA-Public Use
  Company Number: US-ROCHE-668793

PATIENT
  Sex: Female
  Weight: 104.3 kg

DRUGS (11)
  1. RIBASPHERE [Suspect]
     Indication: HEPATITIS C
     Dosage: DIVIDED DOSES
     Route: 048
     Dates: start: 20091106
  2. RIBASPHERE [Suspect]
     Dosage: DOSE REDUCED
     Route: 048
     Dates: start: 20091120
  3. PROCRIT [Suspect]
     Indication: ANAEMIA
     Route: 058
     Dates: start: 20100418
  4. PEGASYS [Suspect]
     Indication: HEPATITIS C
     Dosage: FORM: PRE-FILLED SYRINGE
     Route: 058
     Dates: start: 20091106
  5. NEUPOGEN [Suspect]
     Route: 058
  6. RIBASPHERE [Suspect]
     Dosage: DOSE REDUCED.
     Route: 048
  7. RIBASPHERE [Suspect]
     Route: 048
     Dates: start: 20100415
  8. RIBASPHERE [Suspect]
     Dosage: DOSE REDUCED PERMANENTLY.
     Route: 048
  9. NEUPOGEN [Suspect]
     Indication: ANAEMIA
     Dosage: DOSE: NOT REPORTED.
     Route: 058
     Dates: start: 20091123
  10. PEGASYS [Suspect]
     Dosage: DOSE REDUCED, FORM: PRE-FILLED SYRINGE
     Route: 058
     Dates: start: 20091120
  11. PEGASYS [Suspect]
     Dosage: FORM: PRE-FILLED SYRINGE
     Route: 058
     Dates: start: 20091204

REACTIONS (15)
  - TRANSFUSION REACTION [None]
  - ANAEMIA [None]
  - RASH [None]
  - PANCYTOPENIA [None]
  - BACK PAIN [None]
  - HAEMOGLOBIN ABNORMAL [None]
  - WHITE BLOOD CELL COUNT DECREASED [None]
  - FATIGUE [None]
  - PAIN [None]
  - COUGH [None]
  - WEIGHT DECREASED [None]
  - NAUSEA [None]
  - PLATELET COUNT DECREASED [None]
  - ALOPECIA [None]
  - DIZZINESS [None]
